FAERS Safety Report 7239542-2 (Version None)
Quarter: 2011Q1

REPORT INFORMATION
  Report Type: 
  Country: None (occurrence: None)
  Receive Date: 20110121
  Receipt Date: 20100205
  Transmission Date: 20110831
  Serious: No
  Sender: FDA-Public Use
  Company Number: US-PFIZER INC-2010022554

PATIENT
  Sex: Female
  Weight: 84.81 kg

DRUGS (2)
  1. PROCARDIA [Suspect]
     Indication: HYPERTENSION
     Dosage: 30 MG DAILY
     Route: 048
     Dates: start: 20100203, end: 20100204
  2. ALDACTAZIDE [Concomitant]
     Indication: HYPERTENSION
     Dosage: 2 X/DAY
     Route: 048

REACTIONS (5)
  - PAIN [None]
  - NERVOUSNESS [None]
  - BLOOD PRESSURE INADEQUATELY CONTROLLED [None]
  - FLUSHING [None]
  - FEELING ABNORMAL [None]
